FAERS Safety Report 4860887-5 (Version None)
Quarter: 2005Q4

REPORT INFORMATION
  Report Type: 
  Country: None (occurrence: None)
  Receive Date: 20051216
  Receipt Date: 20051202
  Transmission Date: 20060501
  Serious: Yes (Death, Life-Threatening, Hospitalization)
  Sender: FDA-Public Use
  Company Number: DE_051117380

PATIENT
  Age: 63 Year
  Sex: Male
  Weight: 73 kg

DRUGS (12)
  1. GEMZAR [Suspect]
     Indication: NON-SMALL CELL LUNG CANCER
     Dosage: 1900 MG, INTRAVENOUS
     Route: 042
     Dates: start: 20051005
  2. MCP (METOCLOPRAMIDE HYDROCHLORIDE) [Concomitant]
  3. ZOFRAN [Concomitant]
  4. HALOPERIDOL [Concomitant]
  5. SPIRIVA [Concomitant]
  6. PANTOPRAZOLE SODIUM [Concomitant]
  7. FLUNINOC (FLUNITRAZEPAM) [Concomitant]
  8. ISOPTIN [Concomitant]
  9. LACTULOSE [Concomitant]
  10. DIOVAN [Concomitant]
  11. AMITRIPTYLINE HCL [Concomitant]
  12. DURAGESIC-100 [Concomitant]

REACTIONS (3)
  - GENERAL PHYSICAL HEALTH DETERIORATION [None]
  - NEOPLASM PROGRESSION [None]
  - PAIN [None]
